FAERS Safety Report 7060262-1 (Version None)
Quarter: 2010Q4

REPORT INFORMATION
  Report Type: 
  Country: None (occurrence: None)
  Receive Date: 20101025
  Receipt Date: 20101019
  Transmission Date: 20110411
  Serious: No
  Sender: FDA-Public Use
  Company Number: US-WYE-H18274010

PATIENT

DRUGS (1)
  1. METHYLNALTREXONE BROMIDE [Suspect]
     Dosage: USNPECIFIED
     Route: 065

REACTIONS (2)
  - BRADYCARDIA [None]
  - HYPOTENSION [None]
